FAERS Safety Report 9713427 (Version 3)
Quarter: 2013Q4

REPORT INFORMATION
  Report Type: Report from Study
  Country: CN (occurrence: CN)
  Receive Date: 20131126
  Receipt Date: 20131223
  Transmission Date: 20140711
  Serious: Yes (Hospitalization)
  Sender: FDA-Public Use
  Company Number: CN-SA-2013SA119168

PATIENT
  Age: 31 Year
  Sex: Female
  Weight: 55 kg

DRUGS (2)
  1. TAXOTERE [Suspect]
     Indication: BREAST NEOPLASM
     Route: 065
  2. TAXOTERE [Suspect]
     Indication: BREAST NEOPLASM
     Route: 065
     Dates: start: 20130321, end: 20130321

REACTIONS (1)
  - Inner ear inflammation [Recovered/Resolved]
